FAERS Safety Report 6366317-9 (Version None)
Quarter: 2009Q3

REPORT INFORMATION
  Report Type: 
  Country: None (occurrence: None)
  Receive Date: 20090921
  Receipt Date: 20090915
  Transmission Date: 20100115
  Serious: Yes (Other)
  Sender: FDA-Public Use
  Company Number: US-JNJFOC-20090904547

PATIENT
  Sex: Female
  Weight: 44.45 kg

DRUGS (6)
  1. DURAGESIC-100 [Suspect]
     Dosage: 75 UG/HR 2 EVERY 72 HOURS
     Route: 062
  2. DURAGESIC-100 [Suspect]
     Indication: ARTHRITIS
     Dosage: 2 OF 75 UG/HR PATCH
     Route: 062
  3. NITROL [Suspect]
     Indication: CHEST PAIN
     Route: 060
  4. MORPHINE [Concomitant]
     Indication: BREAKTHROUGH PAIN
     Route: 048
  5. VALIUM [Concomitant]
     Indication: SLEEP DISORDER
     Route: 048
  6. HALCION [Concomitant]
     Indication: SLEEP DISORDER
     Route: 048

REACTIONS (6)
  - APPLICATION SITE ULCER [None]
  - CHEST PAIN [None]
  - DRUG ADMINISTERED AT INAPPROPRIATE SITE [None]
  - EMPHYSEMA [None]
  - INAPPROPRIATE SCHEDULE OF DRUG ADMINISTRATION [None]
  - MIGRAINE [None]
